APPROVED DRUG PRODUCT: KETOROLAC TROMETHAMINE
Active Ingredient: KETOROLAC TROMETHAMINE
Strength: 15MG/ML
Dosage Form/Route: INJECTABLE;INJECTION
Application: A204216 | Product #001 | TE Code: AP
Applicant: GLAND PHARMA LTD
Approved: Nov 1, 2016 | RLD: No | RS: No | Type: RX